FAERS Safety Report 10952274 (Version 1)
Quarter: 2015Q1

REPORT INFORMATION
  Report Type: Spontaneous
  Country: US (occurrence: None)
  Receive Date: 20150323
  Receipt Date: 20150323
  Transmission Date: 20150721
  Serious: No
  Sender: FDA-Public Use
  Company Number: VIT-2015-00146

PATIENT
  Age: 41 Year
  Sex: Male
  Weight: 99.5 kg

DRUGS (13)
  1. AMLODIPINE [Concomitant]
     Active Substance: AMLODIPINE BESYLATE
  2. PRORENAL MULTIVITAMIN (LIMAPROST, PRORENAL MULTIVITAMINS) [Concomitant]
  3. RENVELA (SEVELAMER CARBONATTE) [Concomitant]
  4. LOSARTAN [Concomitant]
     Active Substance: LOSARTAN
  5. MITOSOL [Concomitant]
     Active Substance: ISOPROPYL ALCOHOL\MITOMYCIN
  6. VELPHORO [Suspect]
     Active Substance: FERRIC OXYHYDROXIDE
     Indication: HYPERPHOSPHATAEMIA
     Route: 048
     Dates: start: 201410
  7. CALCITRIOL. [Concomitant]
     Active Substance: CALCITRIOL
  8. CLINDAMYCIN HYDROCHLORIDE. [Concomitant]
     Active Substance: CLINDAMYCIN HYDROCHLORIDE
  9. CLONIDINE. [Concomitant]
     Active Substance: CLONIDINE
  10. HYDRALAZINE [Concomitant]
     Active Substance: HYDRALAZINE HYDROCHLORIDE
  11. MIRALAX (MACROGOL) [Concomitant]
  12. LASIX [Concomitant]
     Active Substance: FUROSEMIDE
  13. ALDACTONE [Concomitant]
     Active Substance: SPIRONOLACTONE

REACTIONS (2)
  - Product taste abnormal [None]
  - Product quality issue [None]

NARRATIVE: CASE EVENT DATE: 20150119
